FAERS Safety Report 23442916 (Version 1)
Quarter: 2024Q1

REPORT INFORMATION
  Report Type: Spontaneous
  Country: CN (occurrence: CN)
  Receive Date: 20240125
  Receipt Date: 20240125
  Transmission Date: 20240409
  Serious: Yes (Life-Threatening)
  Sender: FDA-Public Use
  Company Number: CN-BAYER-2024A014421

PATIENT
  Age: 76 Year
  Sex: Male

DRUGS (1)
  1. ULTRAVIST [Suspect]
     Active Substance: IOPROMIDE
     Indication: Chest pain
     Dosage: 100 ML, ONCE
     Route: 041
     Dates: start: 20240108, end: 20240108

REACTIONS (8)
  - Anaphylactic shock [Recovering/Resolving]
  - Respiratory arrest [Recovered/Resolved]
  - Blood pressure decreased [Recovering/Resolving]
  - Cough [Recovering/Resolving]
  - Cyanosis [Recovering/Resolving]
  - Sinus tachycardia [Recovering/Resolving]
  - Oxygen saturation decreased [Recovered/Resolved]
  - Incorrect drug administration rate [None]

NARRATIVE: CASE EVENT DATE: 20240108
